FAERS Safety Report 4718922-0 (Version None)
Quarter: 2005Q3

REPORT INFORMATION
  Report Type: 
  Country: None (occurrence: None)
  Receive Date: 20050720
  Receipt Date: 20050707
  Transmission Date: 20060218
  Serious: Yes (Hospitalization)
  Sender: FDA-Public Use
  Company Number: 2005099425

PATIENT
  Age: 80 Year
  Sex: Male

DRUGS (5)
  1. ALDACTONE [Suspect]
     Indication: HYPERTENSION
     Dosage: 100 MG (100 MG, DAILY, INTERVAL: EVERY DAY), ORAL
     Route: 048
     Dates: end: 20050514
  2. DILTIAZEM [Suspect]
     Indication: HYPERTENSION
     Dosage: 120 MG (120 MG, DAILY,  INTERVAL: EVERY DAY), ORAL
     Route: 048
     Dates: end: 20050514
  3. ENALAPRIL MALEATE [Suspect]
     Indication: HYPERTENSION
     Dosage: 10 MG (10 MG, DAILY,  INTERVAL: EVERYD AY), ORAL
     Route: 048
     Dates: end: 20050514
  4. SINTROM (ACENOCOUMATROL) [Concomitant]
  5. NOVONORM (REPAGLINIDE) [Concomitant]

REACTIONS (3)
  - BUNDLE BRANCH BLOCK LEFT [None]
  - DRUG INTERACTION [None]
  - RENAL FAILURE ACUTE [None]
